FAERS Safety Report 7712492-0 (Version None)
Quarter: 2011Q3

REPORT INFORMATION
  Report Type: 
  Country: None (occurrence: None)
  Receive Date: 20110826
  Receipt Date: 20110826
  Transmission Date: 20111222
  Serious: Yes (Hospitalization, Other)
  Sender: FDA-Public Use
  Company Number: None

PATIENT
  Age: 49 Year
  Sex: Male
  Weight: 112.03 kg

DRUGS (2)
  1. LISINOPRIL [Suspect]
     Indication: HYPERTENSION
     Dosage: ONE
     Route: 048
     Dates: start: 20101018, end: 20110825
  2. OPANA ER [Concomitant]
     Indication: BACK PAIN
     Dosage: ONE
     Route: 048
     Dates: start: 20101111, end: 20110409

REACTIONS (2)
  - HYPERHIDROSIS [None]
  - DIZZINESS [None]
